FAERS Safety Report 15719804 (Version 2)
Quarter: 2018Q4

REPORT INFORMATION
  Report Type: Spontaneous
  Country: RO (occurrence: RO)
  Receive Date: 20181213
  Receipt Date: 20181226
  Transmission Date: 20190205
  Serious: Yes (Death)
  Sender: FDA-Public Use
  Company Number: RO-ASTRAZENECA-2018SF60715

PATIENT
  Age: 78 Year
  Sex: Female

DRUGS (4)
  1. OLICARD [Concomitant]
     Active Substance: ISOSORBIDE MONONITRATE
  2. ASA [Concomitant]
     Active Substance: ASPIRIN
  3. AMLODIPINE [Concomitant]
     Active Substance: AMLODIPINE BESYLATE
  4. BRILIQUE [Suspect]
     Active Substance: TICAGRELOR
     Route: 048
     Dates: start: 20180108, end: 20181111

REACTIONS (5)
  - Cardiopulmonary failure [Fatal]
  - Palpitations [Unknown]
  - Dyspnoea exertional [Unknown]
  - Fatigue [Unknown]
  - Asthenia [Unknown]
